FAERS Safety Report 6686797-9 (Version None)
Quarter: 2010Q2

REPORT INFORMATION
  Report Type: 
  Country: None (occurrence: None)
  Receive Date: 20100419
  Receipt Date: 20100409
  Transmission Date: 20101027
  Serious: Yes (Death)
  Sender: FDA-Public Use
  Company Number: GXKR2010US04026

PATIENT
  Age: 5 Year
  Sex: Male

DRUGS (6)
  1. SUCCINYLCHOLINE CHLORIDE [Suspect]
     Indication: ANAESTHESIA
     Route: 042
  2. ISOVUE-128 [Suspect]
     Indication: SCAN WITH CONTRAST
     Dosage: 6 ML, (ISOVUE 370 PREPARATION CONTAINED 370 MG/ML IODINE)
     Route: 042
  3. ISOVUE-128 [Suspect]
     Dosage: 34 ML, UNK
     Route: 042
  4. SEVOFLURANE [Suspect]
     Indication: ANAESTHESIA
  5. INTUBATION [Concomitant]
  6. OXYGEN [Concomitant]

REACTIONS (3)
  - BRADYCARDIA [None]
  - MECHANICAL VENTILATION [None]
  - SUDDEN CARDIAC DEATH [None]
